FAERS Safety Report 18205035 (Version 2)
Quarter: 2020Q3

REPORT INFORMATION
  Report Type: Spontaneous
  Country: US (occurrence: US)
  Receive Date: 20200828
  Receipt Date: 20200903
  Transmission Date: 20201103
  Serious: Yes (Hospitalization)
  Sender: FDA-Public Use
  Company Number: US-ROCHE-2666367

PATIENT
  Sex: Female

DRUGS (31)
  1. TRAMADOL/ACETAMINOPHEN [Concomitant]
     Active Substance: ACETAMINOPHEN\TRAMADOL
  2. RASUVO [Concomitant]
     Active Substance: METHOTREXATE SODIUM
  3. CYCLOBENZAPRINE. [Concomitant]
     Active Substance: CYCLOBENZAPRINE
  4. LEVOTHYROXINE. [Concomitant]
     Active Substance: LEVOTHYROXINE
  5. MECLIZINE [Concomitant]
     Active Substance: MECLIZINE HYDROCHLORIDE
  6. METOPROLOL SUCCINATE. [Concomitant]
     Active Substance: METOPROLOL SUCCINATE
  7. XIIDRA [Concomitant]
     Active Substance: LIFITEGRAST
  8. METHYLPRED [Concomitant]
     Active Substance: METHYLPREDNISOLONE
  9. PREGABALIN. [Concomitant]
     Active Substance: PREGABALIN
  10. CARISOPRODOL. [Concomitant]
     Active Substance: CARISOPRODOL
  11. FUROSEMIDE. [Concomitant]
     Active Substance: FUROSEMIDE
  12. PREDNISONE. [Concomitant]
     Active Substance: PREDNISONE
  13. AMITRIPTYLINE [Concomitant]
     Active Substance: AMITRIPTYLINE
  14. CLOBETASOL [Concomitant]
     Active Substance: CLOBETASOL
  15. ONDANSETRON [Concomitant]
     Active Substance: ONDANSETRON
  16. ZOLPIDEM [Concomitant]
     Active Substance: ZOLPIDEM TARTRATE
  17. EMGALITY [Concomitant]
     Active Substance: GALCANEZUMAB-GNLM
  18. IBUPROFEN. [Concomitant]
     Active Substance: IBUPROFEN
  19. PANTOPRAZOLE [Concomitant]
     Active Substance: PANTOPRAZOLE
  20. RIZATRIPTAN. [Concomitant]
     Active Substance: RIZATRIPTAN
  21. TRAMADOL HCL [Concomitant]
     Active Substance: TRAMADOL HYDROCHLORIDE
  22. AZITHROMYCIN ANHYDROUS. [Concomitant]
     Active Substance: AZITHROMYCIN ANHYDROUS
  23. OMEPRAZOLE. [Concomitant]
     Active Substance: OMEPRAZOLE
  24. ACTEMRA [Suspect]
     Active Substance: TOCILIZUMAB
     Indication: RHEUMATOID ARTHRITIS
     Dosage: 162 MG/0.9 ML PEN
     Route: 058
     Dates: start: 20200325
  25. ACTEMRA [Suspect]
     Active Substance: TOCILIZUMAB
  26. FOLIC ACID. [Concomitant]
     Active Substance: FOLIC ACID
  27. TOPIRAMATE. [Concomitant]
     Active Substance: TOPIRAMATE
  28. ALPRAZOLAM. [Concomitant]
     Active Substance: ALPRAZOLAM
  29. ESCITALOPRAM [Concomitant]
     Active Substance: ESCITALOPRAM OXALATE
  30. FAMOTIDINE. [Concomitant]
     Active Substance: FAMOTIDINE
  31. NICOTINE. [Concomitant]
     Active Substance: NICOTINE

REACTIONS (1)
  - Arthralgia [Unknown]
